FAERS Safety Report 25767051 (Version 1)
Quarter: 2025Q3

REPORT INFORMATION
  Report Type: Spontaneous
  Country: US (occurrence: None)
  Receive Date: 20250904
  Receipt Date: 20250904
  Transmission Date: 20251020
  Serious: Yes (Death, Life-Threatening, Hospitalization, Other)
  Sender: FDA-CTU
  Company Number: None

PATIENT
  Age: 73 Year
  Sex: Male
  Weight: 103.5 kg

DRUGS (19)
  1. ETODOLAC [Suspect]
     Active Substance: ETODOLAC
     Indication: Chest pain
     Dosage: FREQUENCY : TWICE A DAY;?
     Route: 048
     Dates: start: 20240905, end: 20240905
  2. PLAVIX [Concomitant]
     Active Substance: CLOPIDOGREL BISULFATE
  3. LEVOTHYROXINE [Concomitant]
     Active Substance: LEVOTHYROXINE
  4. ATORVASTATIN [Concomitant]
     Active Substance: ATORVASTATIN
  5. ASPIRIN [Concomitant]
     Active Substance: ASPIRIN
  6. OZEMPIC [Concomitant]
     Active Substance: SEMAGLUTIDE
  7. METOPROLOL SUCCINATE [Concomitant]
     Active Substance: METOPROLOL SUCCINATE
  8. MOTRIN [Concomitant]
     Active Substance: IBUPROFEN
  9. MOTRIN [Concomitant]
     Active Substance: IBUPROFEN
  10. TERAZOSIN [Concomitant]
     Active Substance: TERAZOSIN HYDROCHLORIDE
  11. ISOSORBIDE MONONITRATE [Concomitant]
     Active Substance: ISOSORBIDE MONONITRATE
  12. GABAPENTIN [Concomitant]
     Active Substance: GABAPENTIN
  13. HYDROCODONE [Concomitant]
     Active Substance: HYDROCODONE
  14. METFORMIN [Concomitant]
     Active Substance: METFORMIN HYDROCHLORIDE
  15. LOSARTAN [Concomitant]
     Active Substance: LOSARTAN
  16. VITAMINS [Concomitant]
     Active Substance: VITAMINS
  17. CALCIUM [Concomitant]
     Active Substance: CALCIUM
  18. VITAMIN D [Concomitant]
     Active Substance: VITAMIN D NOS
  19. B12 [Concomitant]

REACTIONS (10)
  - Chest pain [None]
  - Muscular weakness [None]
  - Muscular weakness [None]
  - General physical health deterioration [None]
  - Dyspnoea [None]
  - Palpitations [None]
  - Heart rate decreased [None]
  - Choking [None]
  - Cardiac failure [None]
  - Unresponsive to stimuli [None]

NARRATIVE: CASE EVENT DATE: 20240905
